FAERS Safety Report 14583321 (Version 1)
Quarter: 2018Q1

REPORT INFORMATION
  Report Type: Spontaneous
  Country: BR (occurrence: BR)
  Receive Date: 20180228
  Receipt Date: 20180228
  Transmission Date: 20180509
  Serious: Yes (Hospitalization)
  Sender: FDA-Public Use
  Company Number: BR-OTSUKA-DJ20114713

PATIENT
  Age: 37 Year
  Sex: Female
  Weight: 70 kg

DRUGS (1)
  1. ABILIFY [Suspect]
     Active Substance: ARIPIPRAZOLE
     Indication: SCHIZOPHRENIA
     Dosage: 1 DF, UNK
     Route: 048
     Dates: start: 20110824, end: 20110902

REACTIONS (5)
  - Overdose [Unknown]
  - Aphasia [Unknown]
  - Feeling abnormal [Unknown]
  - Unresponsive to stimuli [Unknown]
  - Affect lability [Unknown]

NARRATIVE: CASE EVENT DATE: 201108
